FAERS Safety Report 5719933-9 (Version None)
Quarter: 2008Q2

REPORT INFORMATION
  Report Type: 
  Country: None (occurrence: None)
  Receive Date: 20080425
  Receipt Date: 20080425
  Transmission Date: 20081010
  Serious: No
  Sender: FDA-Public Use
  Company Number: None

PATIENT
  Sex: Female
  Weight: 13.6079 kg

DRUGS (2)
  1. PROPOFOL [Suspect]
     Indication: NUCLEAR MAGNETIC RESONANCE IMAGING
     Dates: start: 20071215, end: 20080403
  2. PROPOFOL [Suspect]
     Indication: SEDATIVE THERAPY
     Dates: start: 20071215, end: 20080403

REACTIONS (2)
  - CHILLS [None]
  - PYREXIA [None]
